FAERS Safety Report 13538897 (Version 1)
Quarter: 2017Q2

REPORT INFORMATION
  Report Type: Spontaneous
  Country: US (occurrence: US)
  Receive Date: 20170511
  Receipt Date: 20170511
  Transmission Date: 20170830
  Serious: Yes (Hospitalization)
  Sender: FDA-Public Use
  Company Number: None

PATIENT
  Age: 54 Year
  Sex: Male
  Weight: 85.5 kg

DRUGS (8)
  1. PRIMIDONE. [Concomitant]
     Active Substance: PRIMIDONE
  2. REMICADE [Suspect]
     Active Substance: INFLIXIMAB
     Indication: PSORIATIC ARTHROPATHY
     Route: 042
  3. PROPRANOLOL [Concomitant]
     Active Substance: PROPRANOLOL HYDROCHLORIDE
  4. TUMERIC [Concomitant]
     Active Substance: HERBALS\TURMERIC
  5. GNC MEGA MEN 50 PLUS VITAMINS [Concomitant]
  6. GINGER. [Concomitant]
     Active Substance: GINGER
  7. SERTRALINE [Concomitant]
     Active Substance: SERTRALINE HYDROCHLORIDE
  8. LISINOPRIL. [Concomitant]
     Active Substance: LISINOPRIL

REACTIONS (2)
  - Chills [None]
  - Muscle spasms [None]

NARRATIVE: CASE EVENT DATE: 20170511
